FAERS Safety Report 9732534 (Version 1)
Quarter: 2013Q4

REPORT INFORMATION
  Report Type: Spontaneous
  Country: US (occurrence: US)
  Receive Date: 20131204
  Receipt Date: 20131204
  Transmission Date: 20140711
  Serious: No
  Sender: FDA-Public Use
  Company Number: US-ENDO PHARMACEUTICALS INC.-ZOLP20120083

PATIENT
  Sex: Male

DRUGS (1)
  1. ZOLPIDEM TARTRATE TABLETS 10MG [Suspect]
     Indication: PRODUCT USED FOR UNKNOWN INDICATION
     Dosage: 10MG
     Route: 048
     Dates: end: 2012

REACTIONS (2)
  - Hallucination [Unknown]
  - Feeling abnormal [Unknown]
